FAERS Safety Report 6551058-5 (Version None)
Quarter: 2010Q1

REPORT INFORMATION
  Report Type: 
  Country: None (occurrence: None)
  Receive Date: 20100122
  Receipt Date: 20100122
  Transmission Date: 20100710
  Serious: No
  Sender: FDA-Public Use
  Company Number: None

PATIENT
  Age: 56 Year
  Sex: Female
  Weight: 78.0187 kg

DRUGS (1)
  1. LIPITOR [Suspect]
     Indication: BLOOD CHOLESTEROL
     Dosage: 1 TABLET PER DAY
     Dates: start: 20091209, end: 20091214

REACTIONS (7)
  - ALOPECIA [None]
  - DRUG HYPERSENSITIVITY [None]
  - HEADACHE [None]
  - PRURITUS [None]
  - RASH [None]
  - SCAB [None]
  - SCAR [None]
